FAERS Safety Report 6641691-4 (Version None)
Quarter: 2010Q1

REPORT INFORMATION
  Report Type: 
  Country: None (occurrence: None)
  Receive Date: 20100319
  Receipt Date: 20100304
  Transmission Date: 20100710
  Serious: Yes (Hospitalization)
  Sender: FDA-Public Use
  Company Number: ES-RANBAXY-2010RR-32438

PATIENT
  Age: 48 Year
  Sex: Male

DRUGS (9)
  1. CARBIDOPA-LEVODOPA [Suspect]
     Dosage: UNK
  2. LEVODOPA [Suspect]
     Dosage: 300 MG, UNK
  3. LEVODOPA [Suspect]
     Dosage: 400 MG, UNK
  4. PERGOLIDE [Concomitant]
  5. SELEGILINE HCL [Concomitant]
  6. AMANTADINE HCL [Concomitant]
  7. ROPINIROLE [Concomitant]
  8. ENTACAPONE [Concomitant]
  9. QUETIAPINE [Concomitant]

REACTIONS (3)
  - DRUG ABUSE [None]
  - HYPERSEXUALITY [None]
  - PATHOLOGICAL GAMBLING [None]
